FAERS Safety Report 9396769 (Version 2)
Quarter: 2013Q3

REPORT INFORMATION
  Report Type: Spontaneous
  Country: AU (occurrence: AU)
  Receive Date: 20130712
  Receipt Date: 20130730
  Transmission Date: 20140515
  Serious: Yes (Other)
  Sender: FDA-Public Use
  Company Number: AU-ASTRAZENECA-2013SE46958

PATIENT
  Age: 87 Year
  Sex: Female
  Weight: 65 kg

DRUGS (5)
  1. SEROQUEL [Suspect]
     Route: 048
     Dates: start: 2010
  2. SEROQUEL [Suspect]
     Route: 048
     Dates: start: 20130514
  3. SEROQUEL [Suspect]
     Route: 048
     Dates: start: 20130516
  4. OMEPRAZOLE [Concomitant]
     Indication: GASTROOESOPHAGEAL REFLUX DISEASE
     Route: 048
  5. MADOPAR [Concomitant]
     Indication: PARKINSON^S DISEASE
     Dosage: 200/500, THREE TIMES DAILY.
     Route: 048

REACTIONS (4)
  - Dysgeusia [Recovered/Resolved]
  - Burning sensation [Recovered/Resolved]
  - Tongue discolouration [Recovered/Resolved]
  - Swollen tongue [Recovered/Resolved]
